FAERS Safety Report 19262001 (Version 2)
Quarter: 2021Q2

REPORT INFORMATION
  Report Type: Spontaneous
  Country: FR (occurrence: FR)
  Receive Date: 20210516
  Receipt Date: 20210525
  Transmission Date: 20210717
  Serious: Yes (Death, Other)
  Sender: FDA-Public Use
  Company Number: FR-AUROBINDO-AUR-APL-2021-019078

PATIENT
  Age: 62 Year
  Sex: Female
  Weight: 89 kg

DRUGS (6)
  1. NEULEPTIL [Suspect]
     Active Substance: PERICIAZINE
     Indication: PSYCHOTIC DISORDER
     Dosage: 200 MILLIGRAM, ONCE A DAY (500MGX4)
     Route: 048
     Dates: end: 20210408
  2. TERALITHE [Suspect]
     Active Substance: LITHIUM CARBONATE
     Indication: PSYCHOTIC DISORDER
     Dosage: 1.2 GRAM, ONCE A DAY
     Route: 048
     Dates: end: 20210408
  3. ASTRAZENECA COVID?19 VACCINE [Suspect]
     Active Substance: AZD-1222
     Indication: COVID-19 IMMUNISATION
     Dosage: 1 DOSAGE FORM, 1 TOTAL
     Route: 030
     Dates: start: 20210309, end: 20210309
  4. SERTRALINE ARROW [Suspect]
     Active Substance: SERTRALINE HYDROCHLORIDE
     Indication: PSYCHOTIC DISORDER
     Dosage: 100 MILLIGRAM, ONCE A DAY
     Route: 048
     Dates: end: 20210408
  5. ZAMUDOL [Suspect]
     Active Substance: TRAMADOL HYDROCHLORIDE
     Indication: PSYCHOTIC DISORDER
     Dosage: 200 MILLIGRAM, ONCE A DAY
     Route: 048
     Dates: end: 20210408
  6. OLANZAPINE ARROW [Suspect]
     Active Substance: OLANZAPINE
     Indication: PSYCHOTIC DISORDER
     Dosage: 30 MILLIGRAM, ONCE A DAY
     Route: 048
     Dates: end: 20210408

REACTIONS (2)
  - Gastrointestinal haemorrhage [Fatal]
  - Sudden death [Fatal]

NARRATIVE: CASE EVENT DATE: 20210408
